FAERS Safety Report 23526567 (Version 3)
Quarter: 2024Q1

REPORT INFORMATION
  Report Type: Spontaneous
  Country: CA (occurrence: CA)
  Receive Date: 20240215
  Receipt Date: 20240327
  Transmission Date: 20240409
  Serious: No
  Sender: FDA-Public Use
  Company Number: CA-PFIZER INC-202400024683

PATIENT
  Age: 55 Year
  Sex: Female

DRUGS (2)
  1. ABRILADA [Suspect]
     Active Substance: ADALIMUMAB-AFZB
     Dosage: 40 MG, EVERY 14 DAYS
     Route: 058
     Dates: start: 20220518
  2. ABRILADA [Suspect]
     Active Substance: ADALIMUMAB-AFZB
     Dosage: 40 MG, EVERY 14 DAYS
     Route: 058
     Dates: start: 20240124

REACTIONS (3)
  - Needle issue [Unknown]
  - Scratch [Unknown]
  - Device leakage [Unknown]

NARRATIVE: CASE EVENT DATE: 20240124
